FAERS Safety Report 6413225-0 (Version None)
Quarter: 2009Q4

REPORT INFORMATION
  Report Type: 
  Country: None (occurrence: None)
  Receive Date: 20091026
  Receipt Date: 20091020
  Transmission Date: 20100525
  Serious: Yes (Other)
  Sender: FDA-Public Use
  Company Number: US-AVENTIS-200919431US

PATIENT
  Sex: Male

DRUGS (4)
  1. LANTUS [Suspect]
     Route: 058
     Dates: start: 20060101
  2. OPTICLIK (INSULIN INJECTION PEN) [Suspect]
     Dates: start: 20060101
  3. DIOVANE [Concomitant]
     Dosage: DOSE: UNK
  4. LEVOTHYROXINE SODIUM [Concomitant]
     Dosage: DOSE: UNK

REACTIONS (3)
  - HALO VISION [None]
  - HYPERHIDROSIS [None]
  - HYPOGLYCAEMIA [None]
